FAERS Safety Report 22588479 (Version 1)
Quarter: 2023Q2

REPORT INFORMATION
  Report Type: Report from Study
  Country: PK (occurrence: PK)
  Receive Date: 20230612
  Receipt Date: 20230612
  Transmission Date: 20230721
  Serious: Yes (Death, Other)
  Sender: FDA-Public Use
  Company Number: PK-002147023-NVSC2023PK132351

PATIENT
  Sex: Male
  Weight: 62 kg

DRUGS (1)
  1. AFINITOR [Suspect]
     Active Substance: EVEROLIMUS
     Indication: Neuroendocrine tumour
     Dosage: 1 DOSAGE FORM, QD
     Route: 048
     Dates: start: 20191017

REACTIONS (3)
  - Neuroendocrine tumour [Fatal]
  - Malignant neoplasm progression [Fatal]
  - Loss of consciousness [Unknown]
